FAERS Safety Report 16974936 (Version 1)
Quarter: 2019Q4

REPORT INFORMATION
  Report Type: Spontaneous
  Country: FR (occurrence: FR)
  Receive Date: 20191030
  Receipt Date: 20191030
  Transmission Date: 20200122
  Serious: Yes (Other)
  Sender: FDA-Public Use
  Company Number: FR-TEVA-2019-FR-1130412

PATIENT
  Sex: Female

DRUGS (1)
  1. AMOXICILLINE RATIOPHARM 1 G [Suspect]
     Active Substance: AMOXICILLIN
     Indication: PRODUCT USED FOR UNKNOWN INDICATION
     Route: 065

REACTIONS (4)
  - Swelling [Unknown]
  - Respiratory disorder [Unknown]
  - Face oedema [Unknown]
  - Urticaria [Unknown]
